FAERS Safety Report 8727929 (Version 2)
Quarter: 2013Q1

REPORT INFORMATION
  Report Type: Spontaneous
  Country: US (occurrence: US)
  Receive Date: 20120816
  Receipt Date: 20130215
  Transmission Date: 20140127
  Serious: No
  Sender: FDA-Public Use
  Company Number: US-009507513-1208USA005975

PATIENT
  Sex: 0

DRUGS (1)
  1. COPPERTONE WATER BABIES SUNSCREEN STICK SPF-55 [Suspect]
     Indication: PRODUCT USED FOR UNKNOWN INDICATION
     Dosage: UNK, ONCE
     Route: 061
     Dates: start: 201206

REACTIONS (2)
  - Burning sensation [Unknown]
  - Erythema [Not Recovered/Not Resolved]
